FAERS Safety Report 6905417-9 (Version None)
Quarter: 2010Q3

REPORT INFORMATION
  Report Type: 
  Country: None (occurrence: None)
  Receive Date: 20100802
  Receipt Date: 20100727
  Transmission Date: 20110219
  Serious: Yes (Hospitalization)
  Sender: FDA-Public Use
  Company Number: 2010MA001195

PATIENT
  Age: 72 Year
  Sex: Female

DRUGS (2)
  1. HYDROMET SYRUP (HYDROCODONE BITARTARATE 5MG/5ML AND HOMATROPINE MBR 1. [Suspect]
     Indication: PNEUMONIA
     Dosage: 5 ML;1X;PO
     Route: 048
     Dates: start: 20090801
  2. AVELOX (CON.) [Concomitant]

REACTIONS (5)
  - BLOOD SODIUM DECREASED [None]
  - COMA [None]
  - DEHYDRATION [None]
  - DELIRIUM [None]
  - DRUG INTERACTION [None]
